FAERS Safety Report 16975954 (Version 2)
Quarter: 2021Q1

REPORT INFORMATION
  Report Type: Report from Study
  Country: US (occurrence: US)
  Receive Date: 20191030
  Receipt Date: 20210209
  Transmission Date: 20210419
  Serious: Yes (Hospitalization, Other)
  Sender: FDA-Public Use
  Company Number: US-SHIRE-US201935710

PATIENT
  Sex: Female

DRUGS (4)
  1. TEDUGLUTIDE [Suspect]
     Active Substance: TEDUGLUTIDE
     Indication: PRODUCT USED FOR UNKNOWN INDICATION
     Dosage: 0.540 UNK, QD
     Route: 058
     Dates: start: 20180319, end: 20210127
  2. TEDUGLUTIDE [Suspect]
     Active Substance: TEDUGLUTIDE
     Indication: PRODUCT USED FOR UNKNOWN INDICATION
     Dosage: 0.540 UNK, QD
     Route: 058
     Dates: start: 20180319, end: 20210127
  3. TEDUGLUTIDE [Suspect]
     Active Substance: TEDUGLUTIDE
     Indication: PRODUCT USED FOR UNKNOWN INDICATION
     Dosage: 0.540 UNK, QD
     Route: 058
     Dates: start: 20180319, end: 20210127
  4. TEDUGLUTIDE [Suspect]
     Active Substance: TEDUGLUTIDE
     Indication: PRODUCT USED FOR UNKNOWN INDICATION
     Dosage: 0.540 UNK, QD
     Route: 058
     Dates: start: 20180319, end: 20210127

REACTIONS (3)
  - Loss of consciousness [Recovered/Resolved]
  - Vascular device infection [Recovered/Resolved]
  - Product dose omission issue [Recovered/Resolved]
